FAERS Safety Report 8417251-1 (Version None)
Quarter: 2012Q2

REPORT INFORMATION
  Report Type: 
  Country: None (occurrence: None)
  Receive Date: 20120606
  Receipt Date: 20120604
  Transmission Date: 20120825
  Serious: Yes (Hospitalization, Other)
  Sender: FDA-Public Use
  Company Number: US-PFIZER INC-2012105331

PATIENT
  Sex: Female

DRUGS (3)
  1. LYRICA [Suspect]
     Indication: FIBROMYALGIA
     Dosage: 225 MG, 2X/DAY
     Route: 048
  2. ZANTAC [Concomitant]
     Dosage: UNK
  3. XANAX [Concomitant]
     Dosage: UNK

REACTIONS (6)
  - MEMORY IMPAIRMENT [None]
  - HEPATIC ENZYME INCREASED [None]
  - COMA [None]
  - BLOOD POTASSIUM DECREASED [None]
  - PNEUMONIA [None]
  - CONVULSION [None]
